FAERS Safety Report 11335009 (Version 14)
Quarter: 2018Q3

REPORT INFORMATION
  Report Type: Report from Study
  Country: DE (occurrence: DE)
  Receive Date: 20150804
  Receipt Date: 20180824
  Transmission Date: 20181010
  Serious: Yes (Life-Threatening, Hospitalization, Other)
  Sender: FDA-Public Use
  Company Number: DE-ROCHE-ITM201411IM007553

PATIENT
  Age: 56 Year
  Sex: Male
  Weight: 117 kg

DRUGS (16)
  1. PANTOPRAZOL [Concomitant]
     Active Substance: PANTOPRAZOLE SODIUM
     Route: 065
  2. AMLODIPIN [Concomitant]
     Active Substance: AMLODIPINE BESYLATE
     Dosage: 5 MG? 0? 0
     Route: 065
  3. INSULIN [Concomitant]
     Active Substance: INSULIN NOS
     Dosage: 40 IE ? 32 IE ? 12 IE ? 28 IE
     Route: 065
  4. INSULIN PUMP [Concomitant]
     Active Substance: INSULIN NOS
     Route: 065
  5. SEROQUEL [Concomitant]
     Active Substance: QUETIAPINE FUMARATE
     Dosage: 0? 0? 50 MG
     Route: 065
  6. ESBRIET [Suspect]
     Active Substance: PIRFENIDONE
     Dosage: FOR 14 DAYS
     Route: 048
     Dates: start: 20140910, end: 20140923
  7. ESBRIET [Suspect]
     Active Substance: PIRFENIDONE
     Indication: IDIOPATHIC PULMONARY FIBROSIS
     Dosage: FOR 14 DAYS
     Route: 048
     Dates: start: 20140827, end: 20140909
  8. XELEVIA [Concomitant]
     Active Substance: SITAGLIPTIN PHOSPHATE
  9. VENLAFAXIN [Concomitant]
     Active Substance: VENLAFAXINE HYDROCHLORIDE
     Dosage: 225 MG? 0? 150 MG
     Route: 065
  10. DEKRISTOL [Concomitant]
     Active Substance: CHOLECALCIFEROL
     Dosage: IN THE MORNING.
     Route: 065
  11. L?THYROXIN [Concomitant]
     Active Substance: LEVOTHYROXINE SODIUM
     Dosage: 75 ? 0? 0
     Route: 065
  12. INSULIN PUMP [Concomitant]
     Active Substance: INSULIN NOS
     Route: 065
  13. ESBRIET [Suspect]
     Active Substance: PIRFENIDONE
     Route: 048
     Dates: start: 20140924
  14. LYRICA [Concomitant]
     Active Substance: PREGABALIN
     Dosage: 75 MG? 0? 75 MG
     Route: 065
  15. METOPROLOL. [Concomitant]
     Active Substance: METOPROLOL
     Dosage: 95 MG? 0? 0
     Route: 065
  16. INSULIN [Concomitant]
     Active Substance: INSULIN NOS
     Route: 065

REACTIONS (34)
  - Suicide attempt [Unknown]
  - Deep vein thrombosis [Recovered/Resolved with Sequelae]
  - Depression [Not Recovered/Not Resolved]
  - General physical health deterioration [Not Recovered/Not Resolved]
  - Intentional product use issue [Unknown]
  - Depression [Not Recovered/Not Resolved]
  - Phlebitis [Unknown]
  - Gastric disorder [Not Recovered/Not Resolved]
  - Diarrhoea [Unknown]
  - Skin discolouration [Not Recovered/Not Resolved]
  - Eczema [Not Recovered/Not Resolved]
  - Left ventricular failure [Unknown]
  - Limb discomfort [Not Recovered/Not Resolved]
  - Overweight [Unknown]
  - Diabetic ulcer [Unknown]
  - Peripheral swelling [Not Recovered/Not Resolved]
  - Inflammation [Unknown]
  - Wound [Unknown]
  - Erythema [Not Recovered/Not Resolved]
  - Nasopharyngitis [Recovered/Resolved]
  - Thrombosis [Unknown]
  - Haematochezia [Recovered/Resolved]
  - Phlebitis [Not Recovered/Not Resolved]
  - Asthenia [Unknown]
  - Dry skin [Not Recovered/Not Resolved]
  - Depression [Recovered/Resolved]
  - Pain of skin [Recovering/Resolving]
  - Fluid retention [Recovering/Resolving]
  - Osteomyelitis [Recovered/Resolved]
  - Cardiac hypertrophy [Not Recovered/Not Resolved]
  - Dyspnoea [Not Recovered/Not Resolved]
  - Chest pain [Not Recovered/Not Resolved]
  - Pain in extremity [Not Recovered/Not Resolved]
  - Borderline personality disorder [Recovered/Resolved]

NARRATIVE: CASE EVENT DATE: 201409
